FAERS Safety Report 5502714-9 (Version None)
Quarter: 2007Q4

REPORT INFORMATION
  Report Type: 
  Country: None (occurrence: None)
  Receive Date: 20071031
  Receipt Date: 20071023
  Transmission Date: 20080405
  Serious: Yes (Hospitalization)
  Sender: FDA-Public Use
  Company Number: US-BAYER-200713461BCC

PATIENT
  Age: 67 Year
  Sex: Male
  Weight: 132 kg

DRUGS (4)
  1. ALEVE [Suspect]
     Indication: BACK PAIN
     Dosage: TOTAL DAILY DOSE: 440 MG  UNIT DOSE: 220 MG
     Route: 048
  2. ALEVE [Suspect]
     Route: 048
  3. UNKNOWN BLOOD PRESSURE PILL [Concomitant]
  4. UNKNOWN DIABETES PILL [Concomitant]

REACTIONS (5)
  - HEPATIC CIRRHOSIS [None]
  - PNEUMONIA [None]
  - RENAL DISORDER [None]
  - RENAL IMPAIRMENT [None]
  - UNEVALUABLE EVENT [None]
